FAERS Safety Report 8617949-6 (Version None)
Quarter: 2012Q3

REPORT INFORMATION
  Report Type: 
  Country: None (occurrence: None)
  Receive Date: 20120824
  Receipt Date: 20120319
  Transmission Date: 20120928
  Serious: No
  Sender: FDA-Public Use
  Company Number: US-ASTRAZENECA-2012SE18736

PATIENT
  Age: 32 Year
  Sex: Female

DRUGS (7)
  1. SYMBICORT [Suspect]
     Indication: ASTHMA
     Dosage: 80, EVERY 12 HOURS
     Route: 055
  2. PROAIR HFA [Concomitant]
  3. VALTREX [Concomitant]
  4. TRUVADA [Concomitant]
  5. PREZISTA [Concomitant]
  6. LISINOPRIL [Concomitant]
  7. NORVIR [Concomitant]

REACTIONS (1)
  - DYSGEUSIA [None]
